FAERS Safety Report 9158846 (Version 3)
Quarter: 2013Q2

REPORT INFORMATION
  Report Type: Spontaneous
  Country: DE (occurrence: DE)
  Receive Date: 20130313
  Receipt Date: 20130510
  Transmission Date: 20140414
  Serious: Yes (Hospitalization)
  Sender: FDA-Public Use
  Company Number: DE-AMGEN-DEUSP2013015762

PATIENT
  Age: 69 Year
  Sex: Female

DRUGS (14)
  1. PEGFILGRASTIM [Suspect]
     Indication: B-CELL LYMPHOMA
     Dosage: 6 MG, 1 TIME A DAY FOR 1 DAY
     Route: 058
     Dates: start: 20121016, end: 20121016
  2. RITUXIMAB [Suspect]
     Indication: B-CELL LYMPHOMA
     Dosage: 679 MG, 1 TIME A DAY FOR 1 DAY
     Route: 042
     Dates: start: 20121102, end: 20121102
  3. CYCLOPHOSPHAMIDE [Suspect]
     Indication: B-CELL LYMPHOMA
     Dosage: 1388 MG, 1 TIME A DAY FOR 1 DAY
     Route: 042
     Dates: start: 20121013, end: 20121013
  4. DOXORUBICINE /00330901/ [Suspect]
     Indication: B-CELL LYMPHOMA
     Dosage: 93 MG, 1 TIME A DAY FOR 1 DAY
     Route: 042
     Dates: start: 20121013, end: 20121013
  5. PREDNISOLONE [Suspect]
     Indication: B-CELL LYMPHOMA
     Dosage: 100 MG, 1 TIME A DAY FOR 5 DAYS
     Route: 048
     Dates: start: 20121013, end: 20121017
  6. METHOTREXAT /00113802/ [Suspect]
     Indication: B-CELL LYMPHOMA
     Dosage: 2715 MG, 1 TIME A DAY FOR 1 DAY
     Route: 042
     Dates: start: 20120714, end: 20120714
  7. VINCRISTINE [Suspect]
     Indication: B-CELL LYMPHOMA
     Dosage: 2 MG, 1 TIME A DAY FOR 1 DAY
     Route: 042
     Dates: start: 20120915, end: 20120915
  8. LEUCOVORIN                         /00566701/ [Concomitant]
     Indication: B-CELL LYMPHOMA
     Dosage: 15 MG, 1 TIME A DAY FOR 1 DAY
     Route: 058
     Dates: start: 20120715, end: 20120716
  9. LEUCOVORIN                         /00566701/ [Concomitant]
     Dosage: 15 MG, 3 TIMES A DAY FOR 1 DAY
     Route: 058
     Dates: start: 20120715, end: 20120716
  10. PREGABALIN [Concomitant]
     Indication: NEUROPATHY PERIPHERAL
     Dosage: 75 MG, 2 TIMES A DAY
     Route: 048
     Dates: start: 20120918
  11. METOPROLOL [Concomitant]
     Indication: ARRHYTHMIA
     Dosage: 47.5 MG, 1 TIMES A DAY
     Route: 048
     Dates: start: 20121116
  12. DIGITOXIN [Concomitant]
     Indication: ATRIAL FIBRILLATION
     Dosage: 0.07 MG, 1 TIME A DAY
     Route: 048
     Dates: start: 20121119
  13. KALIUMCHLORIDE [Concomitant]
     Indication: PROPHYLAXIS
     Dosage: 600 MG, 2 TIMES A DAY
     Route: 048
     Dates: start: 20121115
  14. ENOXAPARIN SODIUM [Concomitant]
     Indication: THROMBOSIS PROPHYLAXIS
     Dosage: 8 ML, 1 TIME A DAY
     Route: 058
     Dates: start: 20120615

REACTIONS (1)
  - Gamma-glutamyltransferase increased [Recovered/Resolved]
